FAERS Safety Report 8778385 (Version 1)
Quarter: 2012Q4

REPORT INFORMATION
  Report Type: 
  Country: FR (occurrence: FR)
  Receive Date: 20120911
  Receipt Date: 20120911
  Transmission Date: 20130627
  Serious: Yes (Hospitalization, Disabling)
  Sender: FDA-Public Use
  Company Number: FR-009507513-1111USA01085

PATIENT

DRUGS (8)
  1. ISENTRESS [Suspect]
     Route: 048
     Dates: start: 20090422
  2. TRUVADA [Suspect]
     Indication: HIV INFECTION
     Route: 048
     Dates: start: 20090422
  3. CYMEVAN IV [Concomitant]
  4. VISTIDE [Concomitant]
  5. VIRACEPT [Concomitant]
  6. EPIVIR [Concomitant]
  7. ZERIT [Concomitant]
  8. TRIZIVIR [Concomitant]

REACTIONS (1)
  - Osteonecrosis [Recovering/Resolving]
